FAERS Safety Report 18383431 (Version 1)
Quarter: 2020Q4

REPORT INFORMATION
  Report Type: Spontaneous
  Country: US (occurrence: US)
  Receive Date: 20201014
  Receipt Date: 20201014
  Transmission Date: 20210114
  Serious: No
  Sender: FDA-Public Use
  Company Number: US-JNJFOC-20201019200

PATIENT
  Age: 86 Year
  Sex: Male
  Weight: 71.73 kg

DRUGS (1)
  1. XARELTO [Suspect]
     Active Substance: RIVAROXABAN
     Indication: PRODUCT USED FOR UNKNOWN INDICATION
     Dosage: TAKING XARELTO FOR ABOUT 2-3 WEEKS
     Route: 048
     Dates: start: 2020

REACTIONS (2)
  - Prostatic specific antigen increased [Not Recovered/Not Resolved]
  - Blood urine present [Not Recovered/Not Resolved]

NARRATIVE: CASE EVENT DATE: 2020
